FAERS Safety Report 5953948-0 (Version None)
Quarter: 2008Q4

REPORT INFORMATION
  Report Type: 
  Country: None (occurrence: None)
  Receive Date: 20081114
  Receipt Date: 20081030
  Transmission Date: 20090506
  Serious: Yes (Hospitalization)
  Sender: FDA-Public Use
  Company Number: DE-GENENTECH-271046

PATIENT
  Sex: Female

DRUGS (2)
  1. BEVACIZUMAB [Suspect]
     Indication: BREAST CANCER
     Dosage: 470 MG, UNK
     Route: 050
     Dates: start: 20080922
  2. DOCETAXEL [Suspect]
     Indication: BREAST CANCER
     Dosage: 128 MG, UNK
     Route: 050
     Dates: start: 20080922

REACTIONS (4)
  - BONE MARROW FAILURE [None]
  - LEUKOPENIA [None]
  - PSEUDOMONAS INFECTION [None]
  - SEPSIS [None]
